FAERS Safety Report 21050904 (Version 1)
Quarter: 2022Q3

REPORT INFORMATION
  Report Type: Spontaneous
  Country: US (occurrence: None)
  Receive Date: 20220707
  Receipt Date: 20220707
  Transmission Date: 20221026
  Serious: Yes (Hospitalization, Other)
  Sender: FDA-Public Use
  Company Number: US-ROCHE-3110952

PATIENT
  Sex: Male

DRUGS (11)
  1. ESBRIET [Suspect]
     Active Substance: PIRFENIDONE
     Indication: Idiopathic pulmonary fibrosis
     Dosage: 1  CAPSULE
     Route: 048
     Dates: start: 20220503
  2. ESBRIET [Suspect]
     Active Substance: PIRFENIDONE
     Dosage: 2 CAPSULE
     Route: 048
  3. ESBRIET [Suspect]
     Active Substance: PIRFENIDONE
     Dosage: 3 CAPSULE
     Route: 048
  4. TYVASO [Concomitant]
     Active Substance: TREPROSTINIL
  5. TOPROL XL [Concomitant]
     Active Substance: METOPROLOL SUCCINATE
  6. LOSARTAN [Concomitant]
     Active Substance: LOSARTAN
  7. NITRO-DUR [Concomitant]
     Active Substance: NITROGLYCERIN
  8. LIPITOR [Concomitant]
     Active Substance: ATORVASTATIN CALCIUM
  9. REMERON [Concomitant]
     Active Substance: MIRTAZAPINE
  10. FARXIGA [Concomitant]
     Active Substance: DAPAGLIFLOZIN PROPANEDIOL
  11. LANOXIN [Concomitant]
     Active Substance: DIGOXIN

REACTIONS (2)
  - Diarrhoea [Unknown]
  - Large intestinal obstruction [Unknown]
